FAERS Safety Report 23582501 (Version 3)
Quarter: 2024Q2

REPORT INFORMATION
  Report Type: Report from Study
  Country: NL (occurrence: NL)
  Receive Date: 20240229
  Receipt Date: 20240425
  Transmission Date: 20240716
  Serious: Yes (Hospitalization)
  Sender: FDA-Public Use
  Company Number: NL-ABBVIE-5548055

PATIENT
  Age: 62 Year
  Sex: Male

DRUGS (12)
  1. CARBIDOPA\LEVODOPA [Suspect]
     Active Substance: CARBIDOPA\LEVODOPA
     Indication: Parkinson^s disease
     Dosage: MD: 8.7 ML, AD: 3.1 ML, ED: 1.0 ML?DURATION TEXT: REMAINS AT 16 HOURS
     Route: 050
     Dates: start: 20231204, end: 20231207
  2. CARBIDOPA\LEVODOPA [Suspect]
     Active Substance: CARBIDOPA\LEVODOPA
     Dosage: MD: 8.7 ML, CD: 3.5 ML/H, ED: 2.0 ML?DURATION TEXT: REMAINS AT 16 HOURS
     Route: 050
     Dates: start: 20231220, end: 20240110
  3. CARBIDOPA\LEVODOPA [Suspect]
     Active Substance: CARBIDOPA\LEVODOPA
     Dosage: MD: 10.7ML, CD: 3.6ML/H, ED: 1.50ML?DURATION TEXT: REMAINS AT 16 HOURS
     Route: 050
     Dates: start: 20240123, end: 20240226
  4. CARBIDOPA\LEVODOPA [Suspect]
     Active Substance: CARBIDOPA\LEVODOPA
     Dosage: MD: 10.2ML, CD: 3.4ML/H, ED: 1.50ML?DURATION TEXT: REMAINS AT 16 HOURS
     Route: 050
     Dates: start: 20240326
  5. CARBIDOPA\LEVODOPA [Suspect]
     Active Substance: CARBIDOPA\LEVODOPA
     Dosage: MD: 8.7 ML, CD: 3.4 ML/H, ED: 1.0 ML?DURATION TEXT: REMAINS AT 16 HOURS
     Route: 050
     Dates: start: 20231207, end: 20231220
  6. CARBIDOPA\LEVODOPA [Suspect]
     Active Substance: CARBIDOPA\LEVODOPA
     Dosage: MD:10.7ML; CD:3.6ML/H; ED:1.5ML;?DURATION TEXT: REMAINS AT 16 HOURS
     Route: 050
     Dates: start: 20240110, end: 20240123
  7. CARBIDOPA\LEVODOPA [Suspect]
     Active Substance: CARBIDOPA\LEVODOPA
     Dosage: MD: 10.2ML, CD: 3.4ML/H, ED: 1.50ML?DURATION TEXT: REMAINS AT 16 HOURS
     Route: 050
     Dates: start: 20240226, end: 20240304
  8. CARBIDOPA\LEVODOPA [Suspect]
     Active Substance: CARBIDOPA\LEVODOPA
     Dosage: MD: 10.2ML, CD: 3.4ML/H, ED: 1.50ML?DURATION TEXT: REMAINS AT 16 HOURS
     Route: 050
     Dates: start: 20240304, end: 20240326
  9. MOVICOLON [Concomitant]
     Active Substance: POLYETHYLENE GLYCOL 3350\POTASSIUM CHLORIDE\SODIUM BICARBONATE\SODIUM CHLORIDE
     Indication: Constipation
     Dosage: TIME INTERVAL: AS NECESSARY: IF NEEDED, ONCE PER DAY
  10. LORAZEPAM [Concomitant]
     Active Substance: LORAZEPAM
     Indication: Depression
     Dosage: TIME INTERVAL: 0.33333333 DAYS
  11. CLOZAPINE [Concomitant]
     Active Substance: CLOZAPINE
     Indication: Anxiolytic therapy
  12. DOPAMINE [Suspect]
     Active Substance: DOPAMINE HYDROCHLORIDE
     Indication: Product used for unknown indication
     Route: 065

REACTIONS (44)
  - Psychiatric care [Recovered/Resolved]
  - Stress [Not Recovered/Not Resolved]
  - Restlessness [Recovered/Resolved]
  - Device alarm issue [Unknown]
  - On and off phenomenon [Not Recovered/Not Resolved]
  - Tremor [Not Recovered/Not Resolved]
  - Decreased appetite [Not Recovered/Not Resolved]
  - Unevaluable event [Not Recovered/Not Resolved]
  - Muscle twitching [Not Recovered/Not Resolved]
  - Dyskinesia [Not Recovered/Not Resolved]
  - Tension [Not Recovered/Not Resolved]
  - Pain in extremity [Not Recovered/Not Resolved]
  - Incorrect dose administered [Unknown]
  - Inappropriate schedule of product administration [Not Recovered/Not Resolved]
  - Cognitive disorder [Not Recovered/Not Resolved]
  - Unevaluable event [Not Recovered/Not Resolved]
  - Memory impairment [Not Recovered/Not Resolved]
  - Stoma site pain [Recovered/Resolved]
  - Sleep talking [Not Recovered/Not Resolved]
  - Underdose [Unknown]
  - Fear [Not Recovered/Not Resolved]
  - Depressed mood [Not Recovered/Not Resolved]
  - Thinking abnormal [Not Recovered/Not Resolved]
  - Mental fatigue [Not Recovered/Not Resolved]
  - Hospitalisation [Recovered/Resolved]
  - Abnormal dreams [Not Recovered/Not Resolved]
  - Device difficult to use [Unknown]
  - Device kink [Unknown]
  - Unevaluable event [Unknown]
  - Bowel movement irregularity [Not Recovered/Not Resolved]
  - Unevaluable event [Not Recovered/Not Resolved]
  - Stoma site reaction [Not Recovered/Not Resolved]
  - Disturbance in attention [Not Recovered/Not Resolved]
  - Anxiety [Recovered/Resolved]
  - Bowel movement irregularity [Recovered/Resolved]
  - Feeling abnormal [Not Recovered/Not Resolved]
  - Psychiatric care [Recovered/Resolved]
  - Panic attack [Not Recovered/Not Resolved]
  - Food craving [Not Recovered/Not Resolved]
  - Frustration tolerance decreased [Unknown]
  - Hallucination [Recovered/Resolved]
  - Agitation [Not Recovered/Not Resolved]
  - Muscle rigidity [Not Recovered/Not Resolved]
  - General symptom [Not Recovered/Not Resolved]

NARRATIVE: CASE EVENT DATE: 20231201
